FAERS Safety Report 19502331 (Version 1)
Quarter: 2021Q3

REPORT INFORMATION
  Report Type: Report from Study
  Country: ES (occurrence: ES)
  Receive Date: 20210707
  Receipt Date: 20210707
  Transmission Date: 20211014
  Serious: Yes (Death, Hospitalization)
  Sender: FDA-Public Use
  Company Number: ES-TEVA-2021-ES-1929735

PATIENT
  Age: 74 Year
  Sex: Male

DRUGS (11)
  1. LINEZOLID (1279A) [Suspect]
     Active Substance: LINEZOLID
     Indication: ACUTE RESPIRATORY DISTRESS SYNDROME
     Dosage: DESC
     Route: 042
     Dates: start: 20200330, end: 20200410
  2. MEROPENEM (7155A) [Suspect]
     Active Substance: MEROPENEM
     Indication: ACUTE RESPIRATORY DISTRESS SYNDROME
     Dosage: DESC
     Route: 042
     Dates: start: 20200324, end: 20200413
  3. AZITROMICINA (7019A) [Suspect]
     Active Substance: AZITHROMYCIN
     Indication: ACUTE RESPIRATORY DISTRESS SYNDROME
     Dosage: DESC
     Route: 042
     Dates: start: 20200323, end: 20200413
  4. MIDAZOLAM ACCORD 1 MG/ML SOLUCION INYECTABLE Y  PARA PERFUSION EN JERI [Concomitant]
     Indication: LIGHT ANAESTHESIA
     Dosage: DESC, SOLUTION FOR INJECTABLE AND FOR INFUSION IN PRE?FILLED SYRINGE
     Route: 042
     Dates: start: 20200327, end: 20200409
  5. DEXAMETASONA KERN PHARMA 4 MG/ML SOLUCION INYECTABLE EFG , 100 AMPOLLA [Concomitant]
     Indication: ACUTE RESPIRATORY DISTRESS SYNDROME
     Dosage: DESC
     Route: 042
     Dates: start: 20200325, end: 20200331
  6. PANTOPRAZOL (7275A) [Suspect]
     Active Substance: PANTOPRAZOLE
     Indication: ACUTE RESPIRATORY DISTRESS SYNDROME
     Dosage: 40 MILLIGRAM DAILY;
     Route: 042
     Dates: start: 20200323, end: 20200410
  7. TRANGOREX 150 MG / 3 ML SOLUCION INYECTABLE , 120 AMPOLLAS DE 3 ML [Suspect]
     Active Substance: AMIODARONE HYDROCHLORIDE
     Indication: ACUTE RESPIRATORY DISTRESS SYNDROME
     Dosage: DESC
     Route: 042
     Dates: start: 20200405, end: 20200410
  8. CISATRACURIO ACCORDPHARMA 2 MG/ML SOLUCION INYECTABLE Y PARA PERFUSION [Concomitant]
     Indication: HYPOTONIA
     Dosage: DESC, SOLUTION FOR INJECTABLE AND FOR INFUSION
     Route: 042
     Dates: start: 20200324, end: 20200410
  9. NORADRENALINA B. BRAUN 1MG/ML  CONCENTRADO PARA SOLUCION PARA PERFUSIO [Concomitant]
     Indication: ACUTE RESPIRATORY DISTRESS SYNDROME
     Dosage: DESC,
     Route: 042
     Dates: start: 20200326, end: 20200409
  10. FENTANEST 0,05 MG/ML SOLUCION INYECTABLE , 5 AMPOLLAS DE 3 ML [Concomitant]
     Indication: LIGHT ANAESTHESIA
     Dosage: DESC
     Route: 042
     Dates: start: 20200401, end: 20200410
  11. DOPAMINA GRIFOLS 200 MG SOLUCION INYECTABLE, 6 AMPOLLAS DE 5 ML [Concomitant]
     Indication: ACUTE RESPIRATORY DISTRESS SYNDROME
     Dosage: DESC
     Route: 042
     Dates: start: 20200324, end: 20200410

REACTIONS (1)
  - SJS-TEN overlap [Fatal]

NARRATIVE: CASE EVENT DATE: 20200410
